FAERS Safety Report 4880038-0 (Version None)
Quarter: 2006Q1

REPORT INFORMATION
  Report Type: 
  Country: None (occurrence: None)
  Receive Date: 20060111
  Receipt Date: 20051223
  Transmission Date: 20060701
  Serious: Yes (Life-Threatening, Hospitalization, Other)
  Sender: FDA-Public Use
  Company Number: US_0511123635

PATIENT
  Age: 14 Year
  Sex: Male
  Weight: 63.6 kg

DRUGS (3)
  1. STRATTERA [Suspect]
     Indication: ATTENTION DEFICIT/HYPERACTIVITY DISORDER
     Dates: start: 20030211, end: 20030506
  2. EFFEXOR XR [Concomitant]
  3. RISPERIDONE [Concomitant]

REACTIONS (10)
  - ANGER [None]
  - DECREASED APPETITE [None]
  - DEPRESSION [None]
  - HOMICIDAL IDEATION [None]
  - INJURY ASPHYXIATION [None]
  - MOOD ALTERED [None]
  - SOCIAL AVOIDANT BEHAVIOUR [None]
  - SOMNOLENCE [None]
  - SUICIDAL IDEATION [None]
  - SUICIDE ATTEMPT [None]
